FAERS Safety Report 24541192 (Version 1)
Quarter: 2024Q4

REPORT INFORMATION
  Report Type: Spontaneous
  Country: IN (occurrence: IN)
  Receive Date: 20241023
  Receipt Date: 20241023
  Transmission Date: 20250115
  Serious: Yes (Hospitalization, Other)
  Sender: SANDOZ
  Company Number: IN-002147023-NVSC2024IN107566

PATIENT
  Sex: Female

DRUGS (3)
  1. NEORAL [Suspect]
     Active Substance: CYCLOSPORINE
     Indication: Product used for unknown indication
     Dosage: 1 MG, BID
     Route: 048
  2. TACROLIMUS [Suspect]
     Active Substance: TACROLIMUS
     Indication: Renal transplant
     Dosage: 2 MG, BID
     Route: 048
  3. MYFORTIC [Concomitant]
     Active Substance: MYCOPHENOLATE SODIUM
     Indication: Product used for unknown indication
     Dosage: 300 MG, BID
     Route: 065

REACTIONS (11)
  - Neutropenic sepsis [Unknown]
  - Urosepsis [Unknown]
  - Acute kidney injury [Unknown]
  - Gastroenteritis [Unknown]
  - Hypothyroidism [Unknown]
  - Bacterial test positive [Unknown]
  - Haemorrhoids [Unknown]
  - Anal pruritus [Unknown]
  - Urinary tract infection [Unknown]
  - Hypertension [Unknown]
  - Pyrexia [Unknown]
